FAERS Safety Report 19768892 (Version 1)
Quarter: 2021Q3

REPORT INFORMATION
  Report Type: Spontaneous
  Country: US (occurrence: US)
  Receive Date: 20210831
  Receipt Date: 20210831
  Transmission Date: 20211014
  Serious: No
  Sender: FDA-Public Use
  Company Number: US-ASTRAZENECA-2021A675349

PATIENT
  Sex: Female

DRUGS (3)
  1. BYDUREON BCISE [Suspect]
     Active Substance: EXENATIDE
     Indication: ADVERSE REACTION
     Route: 058
  2. BYDUREON [Concomitant]
     Active Substance: EXENATIDE
     Indication: ADVERSE REACTION
     Route: 058
  3. CIPROFLAXIN HCL [Concomitant]
     Active Substance: CIPROFLOXACIN
     Dosage: 2 PILLS EACH DAY, TO TAKE 1 BID
     Route: 048

REACTIONS (5)
  - Urinary tract infection [Unknown]
  - Oedema peripheral [Unknown]
  - Blood glucose increased [Unknown]
  - Device malfunction [Unknown]
  - Glycosylated haemoglobin increased [Unknown]
